FAERS Safety Report 4263765-8 (Version None)
Quarter: 2004Q1

REPORT INFORMATION
  Report Type: 
  Country: None (occurrence: None)
  Receive Date: 20040102
  Receipt Date: 20031215
  Transmission Date: 20041129
  Serious: Yes (Hospitalization, Other)
  Sender: FDA-Public Use
  Company Number: US_031299485

PATIENT
  Age: 79 Year
  Sex: Male
  Weight: 109 kg

DRUGS (2)
  1. HUMALOG [Suspect]
     Indication: DIABETES MELLITUS
     Dosage: 22 U/DAY
  2. HUMULIN N [Suspect]
     Indication: DIABETES MELLITUS
     Dosage: 40 U/DAY
     Dates: start: 19960101

REACTIONS (4)
  - CATARACT [None]
  - DEAFNESS UNILATERAL [None]
  - HEARING IMPAIRED [None]
  - MYOCARDIAL INFARCTION [None]
